FAERS Safety Report 16827393 (Version 1)
Quarter: 2019Q3

REPORT INFORMATION
  Report Type: Report from Study
  Country: US (occurrence: US)
  Receive Date: 20190919
  Receipt Date: 20190919
  Transmission Date: 20191005
  Serious: No
  Sender: FDA-Public Use
  Company Number: US-AGIOS-1908US01340

PATIENT

DRUGS (1)
  1. TIBSOVO [Suspect]
     Active Substance: IVOSIDENIB
     Indication: PRODUCT USED FOR UNKNOWN INDICATION
     Dosage: 250 MILLIGRAMS, 2 TABLETS (500 MG), QD
     Route: 048

REACTIONS (3)
  - Dizziness [Unknown]
  - Blood potassium decreased [Unknown]
  - Hypotension [Unknown]

NARRATIVE: CASE EVENT DATE: 20190816
